FAERS Safety Report 18505090 (Version 4)
Quarter: 2022Q4

REPORT INFORMATION
  Report Type: Other
  Country: CA (occurrence: CA)
  Receive Date: 20201116
  Receipt Date: 20221228
  Transmission Date: 20230113
  Serious: Yes (Death, Other)
  Sender: FDA-Public Use
  Company Number: CA-CELLTRION INC.-2020CA031695

PATIENT

DRUGS (45)
  1. RITUXIMAB [Suspect]
     Active Substance: RITUXIMAB
     Indication: Off label use
     Route: 065
  2. RITUXIMAB [Suspect]
     Active Substance: RITUXIMAB
     Indication: Product used for unknown indication
     Dosage: 4 DOSAGE FORM
     Route: 065
  3. ACYCLOVIR SODIUM [Suspect]
     Active Substance: ACYCLOVIR SODIUM
     Indication: Off label use
     Dosage: UNK
     Route: 065
  4. ACYCLOVIR SODIUM [Suspect]
     Active Substance: ACYCLOVIR SODIUM
     Indication: Antiviral prophylaxis
  5. THYMOCYTE IMMUNE GLOBULIN NOS [Suspect]
     Active Substance: THYMOCYTE IMMUNE GLOBULIN NOS
     Indication: Off label use
     Route: 065
  6. THYMOCYTE IMMUNE GLOBULIN NOS [Suspect]
     Active Substance: THYMOCYTE IMMUNE GLOBULIN NOS
     Indication: Immunosuppression
  7. THYMOCYTE IMMUNE GLOBULIN NOS [Suspect]
     Active Substance: THYMOCYTE IMMUNE GLOBULIN NOS
     Indication: Heart transplant
  8. THYMOCYTE IMMUNE GLOBULIN NOS [Suspect]
     Active Substance: THYMOCYTE IMMUNE GLOBULIN NOS
     Indication: Off label use
     Route: 065
  9. THYMOCYTE IMMUNE GLOBULIN NOS [Suspect]
     Active Substance: THYMOCYTE IMMUNE GLOBULIN NOS
     Indication: Immunosuppression
  10. THYMOCYTE IMMUNE GLOBULIN NOS [Suspect]
     Active Substance: THYMOCYTE IMMUNE GLOBULIN NOS
     Indication: Heart transplant
  11. LAPINE T-LYMPHOCYTE IMMUNE GLOBULIN [Suspect]
     Active Substance: LAPINE T-LYMPHOCYTE IMMUNE GLOBULIN
     Indication: Immunosuppressant drug therapy
     Route: 065
  12. LAPINE T-LYMPHOCYTE IMMUNE GLOBULIN [Suspect]
     Active Substance: LAPINE T-LYMPHOCYTE IMMUNE GLOBULIN
     Indication: Heart transplant
  13. LAPINE T-LYMPHOCYTE IMMUNE GLOBULIN [Suspect]
     Active Substance: LAPINE T-LYMPHOCYTE IMMUNE GLOBULIN
     Indication: Immunosuppressant drug therapy
     Route: 065
  14. LAPINE T-LYMPHOCYTE IMMUNE GLOBULIN [Suspect]
     Active Substance: LAPINE T-LYMPHOCYTE IMMUNE GLOBULIN
     Indication: Heart transplant
  15. CYCLOSPORINE [Suspect]
     Active Substance: CYCLOSPORINE
     Indication: Off label use
     Dosage: UNK
     Route: 065
  16. CYCLOSPORINE [Suspect]
     Active Substance: CYCLOSPORINE
     Indication: Immunosuppression
     Dosage: UNK
     Route: 065
  17. CYCLOSPORINE [Suspect]
     Active Substance: CYCLOSPORINE
     Indication: Chemotherapy
  18. CYCLOPHOSPHAMIDE [Suspect]
     Active Substance: CYCLOPHOSPHAMIDE
     Indication: Off label use
     Route: 065
  19. CYCLOPHOSPHAMIDE [Suspect]
     Active Substance: CYCLOPHOSPHAMIDE
     Indication: Chemotherapy
  20. CYCLOSPORINE [Suspect]
     Active Substance: CYCLOSPORINE
     Indication: Off label use
     Route: 065
  21. CYCLOSPORINE [Suspect]
     Active Substance: CYCLOSPORINE
     Indication: Chemotherapy
  22. GANCICLOVIR [Suspect]
     Active Substance: GANCICLOVIR
     Indication: Pneumonia
     Dosage: UNK
     Route: 042
  23. GANCICLOVIR [Suspect]
     Active Substance: GANCICLOVIR
     Indication: Off label use
     Dosage: UNK
     Route: 042
  24. GANCICLOVIR [Suspect]
     Active Substance: GANCICLOVIR
     Indication: Cytomegalovirus infection
     Dosage: UNK
     Route: 048
  25. GANCICLOVIR [Suspect]
     Active Substance: GANCICLOVIR
     Dosage: UNK
     Route: 042
  26. GANCICLOVIR [Suspect]
     Active Substance: GANCICLOVIR
     Indication: Pneumonia
     Route: 048
  27. GANCICLOVIR [Suspect]
     Active Substance: GANCICLOVIR
     Indication: Off label use
  28. GANCICLOVIR [Suspect]
     Active Substance: GANCICLOVIR
     Indication: Cytomegalovirus infection
  29. HUMAN IMMUNOGLOBULIN G [Suspect]
     Active Substance: HUMAN IMMUNOGLOBULIN G
     Indication: Product used for unknown indication
     Route: 042
  30. HUMAN IMMUNOGLOBULIN G [Suspect]
     Active Substance: HUMAN IMMUNOGLOBULIN G
     Indication: Off label use
  31. MYCOPHENOLATE MOFETIL [Suspect]
     Active Substance: MYCOPHENOLATE MOFETIL
     Indication: Off label use
     Route: 065
  32. MYCOPHENOLATE MOFETIL [Suspect]
     Active Substance: MYCOPHENOLATE MOFETIL
     Indication: Immunosuppression
  33. MYCOPHENOLATE MOFETIL [Suspect]
     Active Substance: MYCOPHENOLATE MOFETIL
     Indication: Heart transplant
  34. DOXORUBICIN HYDROCHLORIDE [Suspect]
     Active Substance: DOXORUBICIN HYDROCHLORIDE
     Indication: Off label use
     Route: 065
  35. DOXORUBICIN HYDROCHLORIDE [Suspect]
     Active Substance: DOXORUBICIN HYDROCHLORIDE
     Indication: Chemotherapy
  36. PREDNISONE [Suspect]
     Active Substance: PREDNISONE
     Indication: Off label use
     Route: 065
  37. PREDNISONE [Suspect]
     Active Substance: PREDNISONE
     Indication: Immunosuppression
  38. TACROLIMUS [Suspect]
     Active Substance: TACROLIMUS
     Indication: Immunosuppression
     Route: 065
  39. TACROLIMUS [Suspect]
     Active Substance: TACROLIMUS
     Indication: Heart transplant
     Dosage: UNK
     Route: 065
  40. VINCRISTINE SULFATE [Suspect]
     Active Substance: VINCRISTINE SULFATE
     Indication: Off label use
     Route: 065
  41. VINCRISTINE SULFATE [Suspect]
     Active Substance: VINCRISTINE SULFATE
     Indication: Chemotherapy
  42. DOXORUBICIN HYDROCHLORIDE [Suspect]
     Active Substance: DOXORUBICIN HYDROCHLORIDE
     Indication: Chemotherapy
     Route: 042
  43. ACYCLOVIR [Suspect]
     Active Substance: ACYCLOVIR
     Indication: Antiviral prophylaxis
     Dosage: UNK
     Route: 065
  44. MYCOPHENOLATE MOFETIL [Suspect]
     Active Substance: MYCOPHENOLATE MOFETIL
     Indication: Immunosuppression
     Route: 065
  45. MYCOPHENOLATE MOFETIL [Suspect]
     Active Substance: MYCOPHENOLATE MOFETIL
     Indication: Heart transplant

REACTIONS (9)
  - Epstein-Barr virus infection [Fatal]
  - Multiple organ dysfunction syndrome [Fatal]
  - Gastric ulcer [Fatal]
  - Haemorrhage intracranial [Fatal]
  - Post transplant lymphoproliferative disorder [Fatal]
  - Smooth muscle cell neoplasm [Fatal]
  - Drug ineffective [Fatal]
  - Intentional product use issue [Fatal]
  - Off label use [Fatal]
